FAERS Safety Report 18688482 (Version 1)
Quarter: 2020Q4

REPORT INFORMATION
  Report Type: Spontaneous
  Country: DE (occurrence: DE)
  Receive Date: 20201231
  Receipt Date: 20201231
  Transmission Date: 20210114
  Serious: Yes (Hospitalization)
  Sender: FDA-Public Use
  Company Number: DE-TEVA-2020-DE-1863678

PATIENT
  Age: 80 Year
  Sex: Female

DRUGS (9)
  1. THIAMAZOL [Concomitant]
     Active Substance: METHIMAZOLE
     Dosage: 20 MILLIGRAM DAILY; 1-0-0-0
  2. SALBUTAMOL [Concomitant]
     Active Substance: ALBUTEROL
     Dosage: 0.1 MG, REQUIREMENT, METERED DOSE INHALER
     Route: 055
  3. CALCIMAGON D3 FORTE 1G/800I.E. [Concomitant]
     Dosage: 1 DOSAGE FORMS DAILY; 1000 | 800 MG / IU, 1-0-0-0
  4. ASS 100 [Suspect]
     Active Substance: ASPIRIN
     Dosage: 100 MILLIGRAM DAILY; 1-0-0-0
  5. METHOCARBAMOL. [Concomitant]
     Active Substance: METHOCARBAMOL
     Dosage: 750 MILLIGRAM DAILY; 0-0-0-1
  6. LEVOFLOXACIN. [Suspect]
     Active Substance: LEVOFLOXACIN
     Route: 065
  7. EXFORGE [Concomitant]
     Active Substance: AMLODIPINE BESYLATE\VALSARTAN
     Dosage: 1 DOSAGE FORMS DAILY; 10|160 MG, 1-0-0-0
  8. FENOFIBRAT [Concomitant]
     Active Substance: FENOFIBRATE
     Dosage: 200 MILLIGRAM DAILY; 0-0-1-0
  9. FOSTER NEXTHALER 100 MIKROGRAMM/6 MIKROGRAMM [Concomitant]
     Dosage: 2 DOSAGE FORMS DAILY; 100|6 UG, 1-0-1-0
     Route: 055

REACTIONS (6)
  - Abdominal pain upper [Unknown]
  - Weight decreased [Unknown]
  - Infection [Unknown]
  - Decreased appetite [Unknown]
  - Night sweats [Unknown]
  - Vomiting [Unknown]

NARRATIVE: CASE EVENT DATE: 202009
